FAERS Safety Report 9108923 (Version 1)
Quarter: 2013Q1

REPORT INFORMATION
  Report Type: Spontaneous
  Country: US (occurrence: US)
  Receive Date: 20130222
  Receipt Date: 20130222
  Transmission Date: 20140127
  Serious: Yes (Hospitalization)
  Sender: FDA-Public Use
  Company Number: US-JNJFOC-20130210264

PATIENT
  Age: 70 Year
  Sex: Male
  Weight: 81.65 kg

DRUGS (5)
  1. TYLENOL ARTHRITIS PAIN ER [Suspect]
     Route: 048
  2. TYLENOL ARTHRITIS PAIN ER [Suspect]
     Indication: ARTHRALGIA
     Dosage: 2 CAPLETS EVERY 8 HOURS
     Route: 048
     Dates: end: 20130131
  3. IBUPROFEN [Suspect]
     Indication: PRODUCT USED FOR UNKNOWN INDICATION
     Route: 065
  4. ASPIRIN [Suspect]
     Indication: PRODUCT USED FOR UNKNOWN INDICATION
     Route: 065
  5. LISINOPRIL [Concomitant]
     Indication: HYPERTENSION
     Dosage: 12.5MG, TWICE
     Route: 065
     Dates: start: 20030101

REACTIONS (2)
  - Haemorrhage [Unknown]
  - Expired drug administered [Unknown]
